FAERS Safety Report 5373963-8 (Version None)
Quarter: 2007Q2

REPORT INFORMATION
  Report Type: 
  Country: None (occurrence: None)
  Receive Date: 20070627
  Receipt Date: 20070622
  Transmission Date: 20071010
  Serious: Yes (Life-Threatening, Hospitalization)
  Sender: FDA-Public Use
  Company Number: E2020-01367-SPO-US

PATIENT
  Age: 76 Year
  Sex: Female

DRUGS (7)
  1. ARICEPT [Suspect]
     Indication: DELUSION
     Dosage: 1 IN 1 D, ORAL
     Route: 048
     Dates: start: 20070601
  2. LUNESTA [Suspect]
     Indication: DRUG USE FOR UNKNOWN INDICATION
     Dosage: ORAL
     Route: 048
     Dates: start: 20070606
  3. NAMENDA [Suspect]
     Indication: DELUSION
     Dosage: ORAL
     Route: 048
     Dates: start: 20070601
  4. ULTRAM [Concomitant]
  5. LORTAB [Concomitant]
  6. NAPROSYN [Concomitant]
  7. KLONOPIN [Concomitant]

REACTIONS (14)
  - CATATONIA [None]
  - CONFUSIONAL STATE [None]
  - CONVULSION [None]
  - CSF PROTEIN INCREASED [None]
  - DEPRESSED LEVEL OF CONSCIOUSNESS [None]
  - DISORIENTATION [None]
  - DYSPHAGIA [None]
  - ENCEPHALITIS [None]
  - FEELING ABNORMAL [None]
  - HYPERTENSIVE CRISIS [None]
  - INFECTION [None]
  - MENINGITIS VIRAL [None]
  - MYOCARDIAL INFARCTION [None]
  - SPEECH DISORDER [None]
